FAERS Safety Report 8051964-9 (Version None)
Quarter: 2012Q1

REPORT INFORMATION
  Report Type: 
  Country: None (occurrence: None)
  Receive Date: 20120111
  Receipt Date: 20111228
  Transmission Date: 20120608
  Serious: Yes (Life-Threatening, Hospitalization, Other)
  Sender: FDA-Public Use
  Company Number: 2011MA018107

PATIENT
  Age: 16 Year
  Sex: Male

DRUGS (1)
  1. PAREGORIC LIQUID USP (ALPHARMA) (PAREGORIC) [Suspect]
     Indication: INTENTIONAL OVERDOSE
     Dosage: 3000 MG; X1; PO
     Route: 048

REACTIONS (15)
  - PLEURAL EFFUSION [None]
  - PNEUMOMEDIASTINUM [None]
  - HYPOTENSION [None]
  - PNEUMOTHORAX [None]
  - EPISTAXIS [None]
  - BLOOD PH DECREASED [None]
  - PULMONARY HAEMORRHAGE [None]
  - RESPIRATORY DISTRESS [None]
  - TOXICITY TO VARIOUS AGENTS [None]
  - AGITATION [None]
  - RED BLOOD CELL SEDIMENTATION RATE INCREASED [None]
  - C-REACTIVE PROTEIN INCREASED [None]
  - ANALGESIC DRUG LEVEL INCREASED [None]
  - HEART RATE INCREASED [None]
  - PNEUMONIA ASPIRATION [None]
